FAERS Safety Report 11232751 (Version 2)
Quarter: 2015Q3

REPORT INFORMATION
  Report Type: Report from Study
  Country: JP (occurrence: JP)
  Receive Date: 20150701
  Receipt Date: 20150807
  Transmission Date: 20151125
  Serious: Yes (Hospitalization)
  Sender: FDA-Public Use
  Company Number: JP-EISAI MEDICAL RESEARCH-EC-2015-008070

PATIENT
  Age: 91 Year
  Sex: Female

DRUGS (8)
  1. ARICEPT [Suspect]
     Active Substance: DONEPEZIL HYDROCHLORIDE
     Indication: DEMENTIA ALZHEIMER^S TYPE
     Route: 048
     Dates: start: 20140424, end: 20140624
  2. AMLODIPINE [Concomitant]
     Active Substance: AMLODIPINE BESYLATE
  3. ETIZOLAM [Concomitant]
     Active Substance: ETIZOLAM
  4. BLOPRESS [Concomitant]
     Active Substance: CANDESARTAN CILEXETIL
  5. DEPAKENE [Concomitant]
     Active Substance: VALPROIC ACID
  6. METHYCOOL [Concomitant]
     Active Substance: METHYLCOBALAMIN
  7. VONFENAC [Concomitant]
  8. DIART [Concomitant]
     Active Substance: AZOSEMIDE

REACTIONS (2)
  - Atrial tachycardia [Recovered/Resolved]
  - Sinus node dysfunction [Recovered/Resolved]

NARRATIVE: CASE EVENT DATE: 20140619
